FAERS Safety Report 14417263 (Version 3)
Quarter: 2018Q1

REPORT INFORMATION
  Report Type: Spontaneous
  Country: US (occurrence: US)
  Receive Date: 20180122
  Receipt Date: 20180130
  Transmission Date: 20180509
  Serious: No
  Sender: FDA-Public Use
  Company Number: US-BAYER-2018-012490

PATIENT
  Sex: Male

DRUGS (1)
  1. CLARITIN [Suspect]
     Active Substance: LORATADINE
     Route: 065

REACTIONS (6)
  - Drug ineffective [Unknown]
  - Underdose [Unknown]
  - Product lot number issue [None]
  - Product expiration date issue [None]
  - Product use complaint [None]
  - Product physical issue [None]
